FAERS Safety Report 4646974-5 (Version None)
Quarter: 2005Q2

REPORT INFORMATION
  Report Type: 
  Country: None (occurrence: None)
  Receive Date: 20050331
  Receipt Date: 20050211
  Transmission Date: 20051028
  Serious: No
  Sender: FDA-Public Use
  Company Number: 05P-163-0290492-00

PATIENT
  Age: 46 Year
  Sex: Female
  Weight: 122.5 kg

DRUGS (11)
  1. HUMIRA [Suspect]
     Indication: RHEUMATOID ARTHRITIS
     Dosage: 40 MG, 1 IN 1 WK, SUBCUTANEOUS
     Route: 058
     Dates: start: 20040201, end: 20050202
  2. CELECOXIB [Concomitant]
  3. METHOTREXATE [Concomitant]
  4. DYAZIDE [Concomitant]
  5. ZOLPIDEM TARTRATE [Concomitant]
  6. OXYCODONE HCL [Concomitant]
  7. LEVOTHYROXINE SODIUM [Concomitant]
  8. ALENDRONATE SODIUM [Concomitant]
  9. MINOCYCLINE HCL [Concomitant]
  10. CETIRIZINE HCL [Concomitant]
  11. PREDNISONE [Concomitant]

REACTIONS (4)
  - COUGH [None]
  - DIARRHOEA [None]
  - INJECTION SITE HAEMORRHAGE [None]
  - PROCEDURAL COMPLICATION [None]
